FAERS Safety Report 7750601-8 (Version None)
Quarter: 2011Q3

REPORT INFORMATION
  Report Type: 
  Country: None (occurrence: None)
  Receive Date: 20110914
  Receipt Date: 20110908
  Transmission Date: 20111222
  Serious: Yes (Hospitalization)
  Sender: FDA-Public Use
  Company Number: US-GLAXOSMITHKLINE-A0836046A

PATIENT
  Age: 57 Year
  Sex: Male
  Weight: 86.4 kg

DRUGS (1)
  1. AVANDIA [Suspect]
     Indication: TYPE 2 DIABETES MELLITUS
     Dosage: 2MG PER DAY
     Route: 065
     Dates: start: 20041202, end: 20080401

REACTIONS (4)
  - CORONARY ARTERY DISEASE [None]
  - PAIN [None]
  - CARDIAC FAILURE CONGESTIVE [None]
  - HYPERTENSION [None]
